FAERS Safety Report 7083903-1 (Version None)
Quarter: 2010Q4

REPORT INFORMATION
  Report Type: 
  Country: None (occurrence: None)
  Receive Date: 20101104
  Receipt Date: 20091125
  Transmission Date: 20110411
  Serious: No
  Sender: FDA-Public Use
  Company Number: US-ABBOTT-09P-163-0611333-00

PATIENT
  Sex: Male
  Weight: 88.076 kg

DRUGS (4)
  1. KALETRA [Suspect]
     Indication: HIV INFECTION
     Dates: start: 20080601
  2. UNKNOWN ALLERGY MEDICATION [Concomitant]
     Indication: PRODUCT USED FOR UNKNOWN INDICATION
  3. FLONASE [Concomitant]
     Indication: PRODUCT USED FOR UNKNOWN INDICATION
  4. DECLINE REST OF LIST [Concomitant]
     Indication: PRODUCT USED FOR UNKNOWN INDICATION

REACTIONS (1)
  - LACTOSE INTOLERANCE [None]
